FAERS Safety Report 17654849 (Version 1)
Quarter: 2020Q2

REPORT INFORMATION
  Report Type: Spontaneous
  Country: FR (occurrence: FR)
  Receive Date: 20200410
  Receipt Date: 20200410
  Transmission Date: 20200713
  Serious: Yes (Hospitalization, Other)
  Sender: FDA-Public Use
  Company Number: FR-PFIZER INC-2020142560

PATIENT
  Age: 64 Year
  Sex: Male
  Weight: 83 kg

DRUGS (20)
  1. CYTARABINE. [Suspect]
     Active Substance: CYTARABINE
     Indication: LEUKAEMIA
     Dosage: 5940 MG, SINGLE
     Route: 042
     Dates: start: 20191219, end: 20191219
  2. METHOTREXATE BIODIM [Suspect]
     Active Substance: METHOTREXATE
     Indication: LEUKAEMIA
     Dosage: 5940 MG, SINGLE
     Route: 042
     Dates: start: 20191219, end: 20191219
  3. METHOTREXATE BIODIM [Suspect]
     Active Substance: METHOTREXATE
     Dosage: 15 MG, SINGLE
     Route: 037
     Dates: start: 20200113, end: 20200113
  4. METHOTREXATE MYLAN [Suspect]
     Active Substance: METHOTREXATE SODIUM
     Dosage: 3370 MG, SINGLE
     Route: 042
     Dates: start: 20200113, end: 20200113
  5. FORADIL [Concomitant]
     Active Substance: FORMOTEROL FUMARATE
     Dosage: UNK
  6. PARACETAMOL [Concomitant]
     Active Substance: ACETAMINOPHEN
     Dosage: UNK
  7. ZAVEDOS [Suspect]
     Active Substance: IDARUBICIN
     Indication: LEUKAEMIA
     Dosage: 23 MG, SINGLE
     Route: 042
     Dates: start: 20200113, end: 20200113
  8. METHOTREXATE MYLAN [Suspect]
     Active Substance: METHOTREXATE SODIUM
     Indication: LEUKAEMIA
     Dosage: 5940 MG, SINGLE
     Route: 042
     Dates: start: 20191219, end: 20191219
  9. ACTISKENAN [Concomitant]
     Active Substance: MORPHINE SULFATE
  10. DEPO-MEDROL [Suspect]
     Active Substance: METHYLPREDNISOLONE ACETATE
     Indication: LEUKAEMIA
     Dosage: 5940 MG, SINGLE
     Route: 042
     Dates: start: 20191219, end: 20191219
  11. UROREC [Concomitant]
     Active Substance: SILODOSIN
     Dosage: UNK
  12. LYRICA [Concomitant]
     Active Substance: PREGABALIN
     Dosage: UNK
  13. PANTOPRAZOLE [Concomitant]
     Active Substance: PANTOPRAZOLE
     Dosage: UNK
  14. DEPO-MEDROL [Suspect]
     Active Substance: METHYLPREDNISOLONE ACETATE
     Dosage: 40 MG, SINGLE
     Route: 037
     Dates: start: 20200113, end: 20200113
  15. CYTARABINE. [Suspect]
     Active Substance: CYTARABINE
     Dosage: 40 MG, SINGLE
     Route: 037
     Dates: start: 20200113, end: 20200113
  16. ONDANSETRON ACCORD [Suspect]
     Active Substance: ONDANSETRON
     Indication: PROPHYLAXIS OF NAUSEA AND VOMITING
     Dosage: 5940 MG, SINGLE
     Route: 042
     Dates: start: 20191219, end: 20191219
  17. NISIS [Concomitant]
     Active Substance: VALSARTAN
     Dosage: UNK
  18. ONDANSETRON ACCORD [Suspect]
     Active Substance: ONDANSETRON
     Dosage: 8 MG, SINGLE
     Route: 042
     Dates: start: 20200113, end: 20200113
  19. THEOSTAT [Concomitant]
     Active Substance: THEOPHYLLINE ANHYDROUS
     Dosage: UNK
  20. SKENAN [Concomitant]
     Active Substance: MORPHINE SULFATE
     Dosage: UNK

REACTIONS (5)
  - Off label use [Unknown]
  - Renal tubular necrosis [Recovered/Resolved]
  - Drug level increased [Recovered/Resolved]
  - Product use in unapproved indication [Unknown]
  - Incorrect route of product administration [Unknown]

NARRATIVE: CASE EVENT DATE: 20191219
